FAERS Safety Report 15695725 (Version 12)
Quarter: 2019Q4

REPORT INFORMATION
  Report Type: Report from Study
  Country: CN (occurrence: CN)
  Receive Date: 20181206
  Receipt Date: 20191227
  Transmission Date: 20200122
  Serious: Yes (Hospitalization, Other)
  Sender: FDA-Public Use
  Company Number: PHHY2018CN172774

PATIENT
  Age: 56 Year
  Sex: Male
  Weight: 72 kg

DRUGS (15)
  1. MYFORTIC [Suspect]
     Active Substance: MYCOPHENOLATE SODIUM
     Indication: IMMUNOSUPPRESSANT DRUG THERAPY
     Dosage: 1080 OT, UNK
     Route: 048
     Dates: start: 20180912, end: 20181114
  2. MYFORTIC [Suspect]
     Active Substance: MYCOPHENOLATE SODIUM
     Dosage: 2160 MG, QD
     Route: 048
     Dates: start: 20180509, end: 20180510
  3. MYFORTIC [Suspect]
     Active Substance: MYCOPHENOLATE SODIUM
     Dosage: 720 OT, UNK
     Route: 048
     Dates: start: 20181115
  4. BASILIXIMAB [Suspect]
     Active Substance: BASILIXIMAB
     Indication: PRODUCT USED FOR UNKNOWN INDICATION
     Dosage: 20 MG, QD
     Route: 065
     Dates: start: 20180508, end: 20180508
  5. MYFORTIC [Suspect]
     Active Substance: MYCOPHENOLATE SODIUM
     Dosage: 2160 MG, QD
     Route: 048
     Dates: start: 20180508, end: 20180508
  6. MYFORTIC [Suspect]
     Active Substance: MYCOPHENOLATE SODIUM
     Dosage: 1080 UNK
     Route: 048
     Dates: start: 20190301, end: 20190621
  7. POTASSIUM CHLORIDE. [Concomitant]
     Active Substance: POTASSIUM CHLORIDE
     Indication: BLOOD POTASSIUM DECREASED
     Dosage: 10 ML, QD
     Route: 042
     Dates: start: 20181113, end: 20181114
  8. OMEPRAZOLE. [Concomitant]
     Active Substance: OMEPRAZOLE
     Indication: PROPHYLAXIS
     Dosage: 40 MG, QD
     Route: 042
     Dates: start: 20181114, end: 20181117
  9. MYFORTIC [Suspect]
     Active Substance: MYCOPHENOLATE SODIUM
     Dosage: 1440 MG, QD
     Route: 048
     Dates: start: 20180526
  10. MONTMORILLONITE [Concomitant]
     Active Substance: MONTMORILLONITE
     Indication: DIARRHOEA
     Dosage: 3 G, BID
     Route: 048
     Dates: start: 20181114, end: 20181114
  11. TORSEMIDE. [Concomitant]
     Active Substance: TORSEMIDE
     Indication: DIURETIC THERAPY
     Dosage: UNK UNK, BID
     Route: 048
     Dates: start: 20180516
  12. MYFORTIC [Suspect]
     Active Substance: MYCOPHENOLATE SODIUM
     Dosage: 1080 MG, QD
     Route: 048
     Dates: start: 20180511, end: 20180525
  13. NIFEDIPINE. [Concomitant]
     Active Substance: NIFEDIPINE
     Indication: HYPERTENSION
     Dosage: UNK UNK, QD
     Route: 048
     Dates: start: 20180514
  14. NICARDIPINE HYDROCHLORIDE. [Concomitant]
     Active Substance: NICARDIPINE HYDROCHLORIDE
     Indication: DRUG LEVEL DECREASED
     Dosage: UNK UNK, BID
     Route: 048
     Dates: start: 20180514
  15. PANTOPRAZOLE [Concomitant]
     Active Substance: PANTOPRAZOLE
     Indication: PROPHYLAXIS
     Dosage: UNK UNK, BID
     Route: 048
     Dates: start: 20180519, end: 20180523

REACTIONS (30)
  - Pyrexia [Recovered/Resolved]
  - Dysuria [Recovered/Resolved]
  - Sepsis [Recovered/Resolved]
  - Blood potassium increased [Recovered/Resolved]
  - Red blood cells urine negative [Recovered/Resolved]
  - Back pain [Recovered/Resolved]
  - Vomiting [Recovered/Resolved]
  - Alanine aminotransferase increased [Recovered/Resolved]
  - Hypertension [Not Recovered/Not Resolved]
  - Blood phosphorus decreased [Recovered/Resolved]
  - Nausea [Recovered/Resolved]
  - Agranulocytosis [Recovered/Resolved]
  - Upper respiratory tract infection [Recovered/Resolved]
  - Low density lipoprotein increased [Not Recovered/Not Resolved]
  - Hyperlipidaemia [Recovered/Resolved]
  - Glucose urine present [Recovered/Resolved]
  - Blood cholesterol increased [Not Recovered/Not Resolved]
  - Blood calcium increased [Recovered/Resolved]
  - Cytomegalovirus infection [Recovered/Resolved]
  - Blood albumin decreased [Recovered/Resolved]
  - Anaemia [Recovered/Resolved]
  - Red blood cell count increased [Recovered/Resolved]
  - Urinary tract infection [Recovered/Resolved]
  - Metabolic acidosis [Recovered/Resolved]
  - Granulocyte count decreased [Recovered/Resolved]
  - Carbon dioxide decreased [Recovered/Resolved]
  - Blood triglycerides increased [Recovered/Resolved]
  - Blood potassium decreased [Recovered/Resolved]
  - Blood glucose increased [Not Recovered/Not Resolved]
  - High density lipoprotein decreased [Not Recovered/Not Resolved]

NARRATIVE: CASE EVENT DATE: 20180511
